FAERS Safety Report 15997530 (Version 1)
Quarter: 2019Q1

REPORT INFORMATION
  Report Type: Spontaneous
  Country: FI (occurrence: FI)
  Receive Date: 20190222
  Receipt Date: 20190222
  Transmission Date: 20190418
  Serious: Yes (Other)
  Sender: FDA-Public Use
  Company Number: FI-TEVA-2019-FI-1014657

PATIENT
  Age: 33 Year
  Sex: Female

DRUGS (2)
  1. DOXIMYCIN [Suspect]
     Active Substance: DOXYCYCLINE
     Indication: POST ABORTION INFECTION
     Dosage: ,DAILY
     Route: 048
     Dates: end: 20181219
  2. METRONIDAZOL RATIOPHARM [Suspect]
     Active Substance: METRONIDAZOLE
     Indication: POST ABORTION INFECTION
     Dosage: ,DAILY
     Route: 048

REACTIONS (1)
  - Drug-induced liver injury [Recovered/Resolved]

NARRATIVE: CASE EVENT DATE: 20181217
